FAERS Safety Report 10067148 (Version 1)
Quarter: 2014Q2

REPORT INFORMATION
  Report Type: Spontaneous
  Country: US (occurrence: None)
  Receive Date: 20140408
  Receipt Date: 20140408
  Transmission Date: 20141212
  Serious: Yes (Other)
  Sender: FDA-Public Use
  Company Number: None

PATIENT
  Age: 24 Year
  Sex: Male
  Weight: 88.45 kg

DRUGS (1)
  1. DOXYCYCLINE [Suspect]
     Indication: DYSURIA
     Dosage: 1 PILL TWICE DAILY TAKEN BY MOUTH
     Route: 048
     Dates: start: 20140205, end: 20140210

REACTIONS (5)
  - Pruritus [None]
  - Restlessness [None]
  - Discomfort [None]
  - No therapeutic response [None]
  - Rash [None]
